FAERS Safety Report 13689303 (Version 1)
Quarter: 2017Q2

REPORT INFORMATION
  Report Type: Spontaneous
  Country: US (occurrence: US)
  Receive Date: 20170625
  Receipt Date: 20170625
  Transmission Date: 20170830
  Serious: No
  Sender: FDA-Public Use
  Company Number: None

PATIENT
  Age: 65 Year
  Sex: Female
  Weight: 81.9 kg

DRUGS (11)
  1. VITAMIN B12 [Concomitant]
     Active Substance: CYANOCOBALAMIN
  2. VITAMIN D3 [Concomitant]
     Active Substance: CHOLECALCIFEROL
  3. PRISTIQ EXTENDED-RELEASE [Concomitant]
     Active Substance: DESVENLAFAXINE SUCCINATE
  4. CYMBALA [Concomitant]
  5. BUPROPRIAN [Suspect]
     Active Substance: BUPROPION
     Indication: DEPRESSION
     Dosage: ?          OTHER STRENGTH:MG;QUANTITY:30 TABLET(S);?
     Route: 048
     Dates: start: 20170601
  6. LOVASTATIN. [Concomitant]
     Active Substance: LOVASTATIN
  7. BUPROP [Concomitant]
     Active Substance: BUPROPION
  8. KLONOPIN [Concomitant]
     Active Substance: CLONAZEPAM
  9. NATURE-THROID [Concomitant]
     Active Substance: THYROID, PORCINE
  10. POTASSIUM CITRATE. [Concomitant]
     Active Substance: POTASSIUM CITRATE
  11. FISH OIL [Concomitant]
     Active Substance: FISH OIL

REACTIONS (4)
  - Psychomotor hyperactivity [None]
  - Depression [None]
  - Euphoric mood [None]
  - Product substitution issue [None]

NARRATIVE: CASE EVENT DATE: 20170615
